FAERS Safety Report 6070587-4 (Version None)
Quarter: 2009Q1

REPORT INFORMATION
  Report Type: 
  Country: None (occurrence: None)
  Receive Date: 20090209
  Receipt Date: 20090128
  Transmission Date: 20090719
  Serious: Yes (Other)
  Sender: FDA-Public Use
  Company Number: US-PFIZER INC-2008099029

PATIENT
  Sex: Female
  Weight: 68 kg

DRUGS (3)
  1. FLAGYL [Suspect]
     Indication: DIARRHOEA
     Dates: start: 20080613
  2. FLAGYL [Suspect]
     Indication: CLOSTRIDIAL INFECTION
     Dates: start: 20080101, end: 20080821
  3. ZOCOR [Concomitant]
     Indication: HYPERTENSION

REACTIONS (2)
  - CLOSTRIDIAL INFECTION [None]
  - NEUROPATHY PERIPHERAL [None]
